FAERS Safety Report 17223021 (Version 3)
Quarter: 2020Q3

REPORT INFORMATION
  Report Type: Spontaneous
  Country: NL (occurrence: NL)
  Receive Date: 20200102
  Receipt Date: 20200806
  Transmission Date: 20201102
  Serious: Yes (Hospitalization)
  Sender: FDA-Public Use
  Company Number: NL-AUROBINDO-AUR-APL-2019-108917

PATIENT
  Age: 89 Year
  Sex: Female
  Weight: 62.8 kg

DRUGS (8)
  1. CHOLECALCIFEROL [Concomitant]
     Active Substance: CHOLECALCIFEROL
     Indication: PRODUCT USED FOR UNKNOWN INDICATION
     Dosage: 800 INTERNATIONAL UNIT, ONCE A DAY
     Route: 065
     Dates: start: 20190902, end: 20191008
  2. MIRTAZAPINE FILM?COATED TABLETS 15MG [Suspect]
     Active Substance: MIRTAZAPINE
     Indication: DEPRESSED MOOD
     Dosage: 15 MILLIGRAM, ONCE A DAY (1 PIECE PER DAY)
     Route: 048
     Dates: start: 20190508, end: 20191008
  3. PARACETAMOL [Concomitant]
     Active Substance: ACETAMINOPHEN
     Indication: PRODUCT USED FOR UNKNOWN INDICATION
     Dosage: 1000 MILLIGRAM, FOUR TIMES/DAY,(1 X 4 TIMES A DAY IF NECESSARY)
     Route: 065
     Dates: start: 20191008
  4. CHOLECALCIFEROL [Concomitant]
     Active Substance: CHOLECALCIFEROL
     Indication: PRODUCT USED FOR UNKNOWN INDICATION
     Dosage: 5600 INTERNATIONAL UNIT, EVERY WEEK (1 X PER WEEK (THURSDAY) 1 ITEM)
     Route: 065
     Dates: start: 20191008
  5. MACROGOL [Concomitant]
     Active Substance: POLYETHYLENE GLYCOLS
     Indication: PRODUCT USED FOR UNKNOWN INDICATION
     Dosage: 1 DOSAGE FORM, ONCE A DAY,(1 PIECE PER DAY, IF NECESSARY)
     Route: 065
     Dates: start: 20190902
  6. TEMAZEPAM. [Concomitant]
     Active Substance: TEMAZEPAM
     Indication: PRODUCT USED FOR UNKNOWN INDICATION
     Dosage: 10 MILLIGRAM, ONCE A DAY, (1 X PER DAY 1 PIECE IF NECESSARY)
     Route: 065
     Dates: start: 20191008
  7. ENALAPRIL 20 MG, TABLET [Suspect]
     Active Substance: ENALAPRIL
     Indication: HYPERTENSION
     Dosage: 20 MILLIGRAM, ONCE A DAY (1 PIECE PER DAY)
     Route: 048
     Dates: start: 20181122, end: 20191010
  8. FRAGMIN [Concomitant]
     Active Substance: DALTEPARIN SODIUM
     Indication: PRODUCT USED FOR UNKNOWN INDICATION
     Dosage: 1 DOSAGE FORM, ONCE A DAY (1 X PER DAY 1 PIECE)
     Route: 065
     Dates: start: 20191008

REACTIONS (1)
  - Hyponatraemia [Recovered/Resolved]

NARRATIVE: CASE EVENT DATE: 20190821
